FAERS Safety Report 19816493 (Version 1)
Quarter: 2021Q3

REPORT INFORMATION
  Report Type: Spontaneous
  Country: TR (occurrence: TR)
  Receive Date: 20210910
  Receipt Date: 20210910
  Transmission Date: 20211014
  Serious: Yes (Death, Other)
  Sender: FDA-Public Use
  Company Number: TR-ABBVIE-21K-161-4074727-00

PATIENT

DRUGS (3)
  1. IMBRUVICA [Suspect]
     Active Substance: IBRUTINIB
     Indication: CHRONIC LYMPHOCYTIC LEUKAEMIA
     Route: 048
  2. IMBRUVICA [Suspect]
     Active Substance: IBRUTINIB
     Route: 048
  3. IMBRUVICA [Suspect]
     Active Substance: IBRUTINIB
     Route: 048

REACTIONS (33)
  - Thrombocytopenia [Unknown]
  - Atrial fibrillation [Unknown]
  - Anaemia [Unknown]
  - Nausea [Unknown]
  - Haemorrhage intracranial [Fatal]
  - Cough [Unknown]
  - Lymphopenia [Unknown]
  - Confusional state [Unknown]
  - Arthralgia [Unknown]
  - Rash [Unknown]
  - Muscle spasms [Unknown]
  - Hypothyroidism [Unknown]
  - Febrile neutropenia [Unknown]
  - Ataxia [Unknown]
  - Pyrexia [Unknown]
  - Pruritus [Unknown]
  - Decreased appetite [Unknown]
  - Fatigue [Unknown]
  - Neutropenia [Unknown]
  - Cellulitis [Unknown]
  - Fungal infection [Unknown]
  - Stomatitis [Unknown]
  - Deep vein thrombosis [Unknown]
  - Pneumonia [Unknown]
  - Arrhythmia [Unknown]
  - Eye disorder [Unknown]
  - Hepatic enzyme increased [Unknown]
  - Diarrhoea [Unknown]
  - Dyspnoea [Unknown]
  - Herpes zoster [Unknown]
  - Gastrointestinal disorder [Unknown]
  - Skin hyperpigmentation [Unknown]
  - Blood creatinine increased [Unknown]
